FAERS Safety Report 5406903-3 (Version None)
Quarter: 2007Q3

REPORT INFORMATION
  Report Type: 
  Country: None (occurrence: None)
  Receive Date: 20070803
  Receipt Date: 20070724
  Transmission Date: 20080115
  Serious: Yes (Hospitalization)
  Sender: FDA-Public Use
  Company Number: US-BAUSCH-2007BL002553

PATIENT
  Age: 28 Year
  Sex: Male

DRUGS (3)
  1. CIPROFLOXACIN HYDROCHLORIDE [Suspect]
     Indication: ANTI-INFECTIVE THERAPY
     Route: 042
  2. CIPROFLOXACIN HYDROCHLORIDE [Suspect]
     Route: 048
  3. SULFASALAZINE [Concomitant]
     Route: 048

REACTIONS (1)
  - PSYCHOTIC DISORDER [None]
